FAERS Safety Report 15225529 (Version 1)
Quarter: 2018Q3

REPORT INFORMATION
  Report Type: Spontaneous
  Country: AT (occurrence: AT)
  Receive Date: 20180801
  Receipt Date: 20180801
  Transmission Date: 20181010
  Serious: Yes (Hospitalization)
  Sender: FDA-Public Use
  Company Number: AT-BIOVITRUM-UK255388

PATIENT
  Age: 32 Year
  Sex: Female

DRUGS (4)
  1. KINERET [Suspect]
     Active Substance: ANAKINRA
     Route: 058
  2. COLCHICINE. [Concomitant]
     Active Substance: COLCHICINE
  3. APOMORPHINE HYDROCHLORIDE HEMIHYDRATE [Concomitant]
     Active Substance: APOMORPHINE HYDROCHLORIDE
  4. UNSPECIFIED PAIN MEDICATION [Concomitant]
     Active Substance: UNSPECIFIED INGREDIENT

REACTIONS (2)
  - Injection site reaction [Recovered/Resolved]
  - Interstitial lung disease [Unknown]
